FAERS Safety Report 8088683 (Version 3)
Quarter: 2013Q1

REPORT INFORMATION
  Report Type: Spontaneous
  Country: US (occurrence: US)
  Receive Date: 20110812
  Receipt Date: 20130327
  Transmission Date: 20140127
  Serious: Yes (Life-Threatening, Hospitalization, Disabling)
  Sender: FDA-Public Use
  Company Number: US-JNJFOC-20110802779

PATIENT
  Sex: Female
  Weight: 65.77 kg

DRUGS (1)
  1. STELARA [Suspect]
     Indication: PSORIASIS
     Route: 058

REACTIONS (2)
  - Apallic syndrome [Not Recovered/Not Resolved]
  - Ischaemic stroke [Not Recovered/Not Resolved]
